FAERS Safety Report 4391816-9 (Version None)
Quarter: 2004Q3

REPORT INFORMATION
  Report Type: 
  Country: None (occurrence: None)
  Receive Date: 20040702
  Receipt Date: 20040430
  Transmission Date: 20050211
  Serious: Yes (Other)
  Sender: FDA-Public Use
  Company Number: 2004UW08907

PATIENT
  Age: 38 Year
  Sex: Male
  Weight: 88.905 kg

DRUGS (2)
  1. CRESTOR [Suspect]
     Indication: BLOOD CHOLESTEROL INCREASED
     Dosage: 10 MG PO
     Route: 048
  2. SYNTHROID [Concomitant]

REACTIONS (3)
  - HYPOAESTHESIA [None]
  - HYPOTHYROIDISM [None]
  - PARAESTHESIA [None]
